FAERS Safety Report 7355439-1 (Version None)
Quarter: 2011Q1

REPORT INFORMATION
  Report Type: 
  Country: None (occurrence: None)
  Receive Date: 20110316
  Receipt Date: 20110303
  Transmission Date: 20110831
  Serious: Yes (Other)
  Sender: FDA-Public Use
  Company Number: DE-ELI_LILLY_AND_COMPANY-DE201102003338

PATIENT

DRUGS (3)
  1. MITOMYCIN [Concomitant]
     Indication: BREAST CANCER
     Dosage: 8 MG/M2, UNK
  2. GEMCITABINE HYDROCHLORIDE [Suspect]
     Indication: BREAST CANCER
     Dosage: 1000 MG/M2, UNK
  3. LIPIODOL [Concomitant]

REACTIONS (1)
  - HEPATIC STEATOSIS [None]
